FAERS Safety Report 13766477 (Version 1)
Quarter: 2017Q3

REPORT INFORMATION
  Report Type: Spontaneous
  Country: US (occurrence: US)
  Receive Date: 20170719
  Receipt Date: 20170719
  Transmission Date: 20171127
  Serious: No
  Sender: FDA-Public Use
  Company Number: US-BAUSCH-BL-2016-019444

PATIENT
  Sex: Male
  Weight: 74.91 kg

DRUGS (2)
  1. XIFAXAN [Suspect]
     Active Substance: RIFAXIMIN
     Indication: ABDOMINAL DISTENSION
     Dosage: 1ST ROUND
     Route: 048
     Dates: start: 201609
  2. XIFAXAN [Suspect]
     Active Substance: RIFAXIMIN
     Dosage: 2ST ROUND
     Route: 048
     Dates: end: 201609

REACTIONS (2)
  - Muscle spasms [Unknown]
  - Off label use [Unknown]
